FAERS Safety Report 16379361 (Version 1)
Quarter: 2019Q2

REPORT INFORMATION
  Report Type: Report from Study
  Country: US (occurrence: US)
  Receive Date: 20190531
  Receipt Date: 20190531
  Transmission Date: 20190711
  Serious: Yes (Death)
  Sender: FDA-Public Use
  Company Number: US-ACTELION-A-NJ2019-190744

PATIENT
  Age: 1 Year
  Sex: Male

DRUGS (1)
  1. TRACLEER [Suspect]
     Active Substance: BOSENTAN
     Indication: PULMONARY ARTERIAL HYPERTENSION
     Dosage: DISSOLVE ONE HALF TAB IN 5ML OF WATER AND GIVE 3.9ML BID
     Route: 048
     Dates: start: 20190330, end: 20190506

REACTIONS (2)
  - Incorrect product dosage form administered [Unknown]
  - Death [Fatal]

NARRATIVE: CASE EVENT DATE: 20190506
